FAERS Safety Report 8094633-1 (Version None)
Quarter: 2012Q1

REPORT INFORMATION
  Report Type: 
  Country: None (occurrence: None)
  Receive Date: 20120131
  Receipt Date: 20120124
  Transmission Date: 20120608
  Serious: No
  Sender: FDA-Public Use
  Company Number: US-B.I. PHARMACEUTICALS,INC./RIDGEFIELD-2010-BP-12667BP

PATIENT
  Sex: Female

DRUGS (7)
  1. PROAIR HFA [Concomitant]
     Indication: CHRONIC OBSTRUCTIVE PULMONARY DISEASE
     Dates: start: 20110101
  2. CALCIUM [Concomitant]
     Indication: PROPHYLAXIS
     Dates: start: 19920101
  3. ASCORBIC ACID [Concomitant]
     Indication: PROPHYLAXIS
     Dates: start: 19920101
  4. MULTI-VITAMINS [Concomitant]
     Indication: PROPHYLAXIS
     Dates: start: 19920101
  5. XANAX [Concomitant]
     Indication: PANIC ATTACK
  6. SPIRIVA [Suspect]
     Indication: CHRONIC OBSTRUCTIVE PULMONARY DISEASE
     Dosage: 18 MCG
     Route: 055
     Dates: start: 20101001
  7. VITAMIN B COMPLEX CAP [Concomitant]
     Indication: PROPHYLAXIS
     Dates: start: 19920101

REACTIONS (2)
  - DRY MOUTH [None]
  - DYSPNOEA [None]
